FAERS Safety Report 8574148-4 (Version None)
Quarter: 2012Q3

REPORT INFORMATION
  Report Type: 
  Country: None (occurrence: None)
  Receive Date: 20120806
  Receipt Date: 20120731
  Transmission Date: 20120928
  Serious: Yes (Hospitalization)
  Sender: FDA-Public Use
  Company Number: US-GILEAD-2012-0059110

PATIENT
  Age: 77 Year
  Sex: Female

DRUGS (2)
  1. LETAIRIS [Suspect]
     Indication: PULMONARY HYPERTENSION
     Dosage: 5 MG, UNK
     Route: 048
     Dates: start: 20111110
  2. PRADAXA [Suspect]
     Dosage: UNK
     Dates: start: 20120601

REACTIONS (2)
  - ATRIAL FIBRILLATION [None]
  - RECTAL HAEMORRHAGE [None]
